FAERS Safety Report 20590260 (Version 1)
Quarter: 2022Q1

REPORT INFORMATION
  Report Type: Spontaneous
  Country: US (occurrence: None)
  Receive Date: 20220312
  Receipt Date: 20220312
  Transmission Date: 20220423
  Serious: Yes (Other)
  Sender: FDA-Public Use
  Company Number: None

PATIENT
  Age: 72 Year
  Sex: Male
  Weight: 72 kg

DRUGS (19)
  1. ALENDRONATE SODIUM [Suspect]
     Active Substance: ALENDRONATE SODIUM
     Indication: Osteoporosis
     Dosage: OTHER QUANTITY : 1 TABLET(S);?OTHER FREQUENCY : 1 EACH WEEK;?
     Route: 048
     Dates: start: 20220219, end: 20220219
  2. Sumatriptan 100mg tab for migraine [Concomitant]
  3. Clobetacol Propionate 0.05% for skin irritation [Concomitant]
  4. OMEPRAZOLE [Concomitant]
     Active Substance: OMEPRAZOLE
  5. MYLANTA [Concomitant]
     Active Substance: ALUMINUM HYDROXIDE\DIMETHICONE\MAGNESIUM HYDROXIDE
  6. NAPROXEN [Concomitant]
     Active Substance: NAPROXEN
  7. PHENYLEPHRINE [Concomitant]
     Active Substance: PHENYLEPHRINE HYDROCHLORIDE
  8. VITAMIN B6 [Concomitant]
     Active Substance: PYRIDOXINE HYDROCHLORIDE
  9. MAGNESIUM CITRATE [Concomitant]
     Active Substance: MAGNESIUM CITRATE
  10. VITAMIN D3 [Concomitant]
     Active Substance: CHOLECALCIFEROL
  11. CALCIUM CITRATE [Concomitant]
     Active Substance: CALCIUM CITRATE
  12. NIACIN [Concomitant]
     Active Substance: NIACIN
  13. COLLAGEN [Concomitant]
     Active Substance: COLLAGEN
  14. GLUCOSAMINE [Concomitant]
     Active Substance: GLUCOSAMINE
  15. CHONDROITIN [Concomitant]
     Active Substance: CHONDROITIN
  16. OMEGA-3 ACIDS [Concomitant]
     Active Substance: OMEGA-3 FATTY ACIDS
  17. VITAMINS [Concomitant]
     Active Substance: VITAMINS
  18. VITAMIN C [Concomitant]
     Active Substance: ASCORBIC ACID
  19. ZINC [Concomitant]
     Active Substance: ZINC

REACTIONS (4)
  - Muscle spasms [None]
  - Musculoskeletal chest pain [None]
  - Pain [None]
  - Pain in extremity [None]

NARRATIVE: CASE EVENT DATE: 20220220
